FAERS Safety Report 18559062 (Version 1)
Quarter: 2020Q4

REPORT INFORMATION
  Report Type: Spontaneous
  Country: AU (occurrence: AU)
  Receive Date: 20201130
  Receipt Date: 20201130
  Transmission Date: 20210114
  Serious: Yes (Other)
  Sender: FDA-Public Use
  Company Number: AU-BEH-2020125427

PATIENT
  Age: 69 Year
  Sex: Male
  Weight: 84.3 kg

DRUGS (7)
  1. DABIGATRAN [Concomitant]
     Active Substance: DABIGATRAN
     Dosage: 150 MILLIGRAM, BID, ROUTE OF ADMINISTRATION: 5. [SIC!]
     Dates: start: 202006
  2. PANADOL [Concomitant]
     Active Substance: ACETAMINOPHEN
     Dosage: 665 MILLIGRAM, T1 BEL. [SIC!], ROUTE OF ADMINISTRATION: 5. [SIC!]
     Dates: start: 202005
  3. PRIVIGEN [Suspect]
     Active Substance: HUMAN IMMUNOGLOBULIN G
     Dosage: UNK
     Route: 042
     Dates: start: 20201124, end: 20201124
  4. PRIVIGEN [Suspect]
     Active Substance: HUMAN IMMUNOGLOBULIN G
     Indication: IMMUNODEFICIENCY COMMON VARIABLE
     Dosage: UNK
     Route: 042
     Dates: start: 20201124, end: 20201124
  5. PRIVIGEN [Suspect]
     Active Substance: HUMAN IMMUNOGLOBULIN G
     Indication: CHRONIC LYMPHOCYTIC LEUKAEMIA
     Dosage: 30 GRAM, TOT
     Route: 042
     Dates: start: 20201124, end: 20201124
  6. POSACONAZOLE [Concomitant]
     Active Substance: POSACONAZOLE
     Dosage: 300 MILLILITER, QD, ROUTE OF ADMINISTRATION 5. [SIC!]
     Dates: start: 202011
  7. METOPROLOL. [Concomitant]
     Active Substance: METOPROLOL
     Dosage: 25 MILLIGRAM, BID, ROUTE OF ADMINISTRATION: 5. [SIC!]
     Dates: start: 202006

REACTIONS (4)
  - Chills [Recovered/Resolved]
  - Pyrexia [Recovered/Resolved]
  - Peripheral circulatory failure [Recovered/Resolved]
  - Dyspnoea [Recovered/Resolved]

NARRATIVE: CASE EVENT DATE: 20201124
